FAERS Safety Report 24294265 (Version 1)
Quarter: 2024Q3

REPORT INFORMATION
  Report Type: Spontaneous
  Country: US (occurrence: US)
  Receive Date: 20240906
  Receipt Date: 20240906
  Transmission Date: 20241016
  Serious: No
  Sender: DOMPE FARMACEUTICI
  Company Number: US-FARMAPROD-202406-2267

PATIENT
  Age: 51 Year
  Sex: Female
  Weight: 74.84 kg

DRUGS (16)
  1. OXERVATE [Suspect]
     Active Substance: CENEGERMIN-BKBJ
     Indication: Neurotrophic keratopathy
     Route: 047
     Dates: start: 20240612
  2. OXERVATE [Suspect]
     Active Substance: CENEGERMIN-BKBJ
  3. DEXTROSE [Concomitant]
     Active Substance: DEXTROSE\DEXTROSE MONOHYDRATE
     Dosage: IN LACTATED RINGERS
  4. HEPARIN [Concomitant]
     Active Substance: HEPARIN SODIUM
  5. SODIUM CHLORIDE [Concomitant]
     Active Substance: SODIUM CHLORIDE
  6. ZOFRAN [Concomitant]
     Active Substance: ONDANSETRON HYDROCHLORIDE
  7. M.V.I.-12 [Concomitant]
     Active Substance: .ALPHA.-TOCOPHEROL\ASCORBIC ACID\BIOTIN\CYANOCOBALAMIN\DEXPANTHENOL\ERGOCALCIFEROL\FOLIC ACID\NIACIN
  8. DEXTROSE [Concomitant]
     Active Substance: DEXTROSE\DEXTROSE MONOHYDRATE
  9. FREAMINE III NOS [Concomitant]
     Active Substance: AMINO ACIDS
  10. LIPOSYN III [Concomitant]
     Active Substance: EGG PHOSPHOLIPIDS\GLYCERIN\SOYBEAN OIL
  11. MULTIPLE TRACE ELEMENTS 5 [Concomitant]
  12. SODIUM ACETATE [Concomitant]
     Active Substance: SODIUM ACETATE
  13. SODIUM CHLORIDE [Concomitant]
     Active Substance: SODIUM CHLORIDE
  14. SODIUM PHOSPHATE [Concomitant]
     Active Substance: SODIUM PHOSPHATE
  15. STERILE WATER [Concomitant]
     Active Substance: WATER
  16. TPN ELECTROLYTES [Concomitant]
     Active Substance: CALCIUM CHLORIDE\MAGNESIUM CHLORIDE\POTASSIUM CHLORIDE\SODIUM ACETATE ANHYDROUS\SODIUM CHLORIDE

REACTIONS (4)
  - Eye pain [Not Recovered/Not Resolved]
  - Eye discharge [Unknown]
  - Sleep disorder [Unknown]
  - Eye irritation [Unknown]

NARRATIVE: CASE EVENT DATE: 20240613
